FAERS Safety Report 5604357-5 (Version None)
Quarter: 2008Q1

REPORT INFORMATION
  Report Type: 
  Country: None (occurrence: None)
  Receive Date: 20080123
  Receipt Date: 20080123
  Transmission Date: 20080703
  Serious: Yes (Life-Threatening, Hospitalization)
  Sender: FDA-Public Use
  Company Number: None

PATIENT
  Age: 71 Year
  Sex: Female
  Weight: 67.1324 kg

DRUGS (1)
  1. LEVAQUIN [Suspect]
     Indication: PANCREATITIS ACUTE
     Dosage: 1 DAILY
     Dates: start: 20080102, end: 20080105

REACTIONS (5)
  - ATRIAL FIBRILLATION [None]
  - DIARRHOEA HAEMORRHAGIC [None]
  - FATIGUE [None]
  - MUCOUS STOOLS [None]
  - TACHYCARDIA [None]
